FAERS Safety Report 24329111 (Version 1)
Quarter: 2024Q3

REPORT INFORMATION
  Report Type: Spontaneous
  Country: TW (occurrence: TW)
  Receive Date: 20240917
  Receipt Date: 20240917
  Transmission Date: 20241017
  Serious: Yes (Other)
  Sender: NOVARTIS
  Company Number: TW-002147023-NVSC2024TW179553

PATIENT
  Age: 69 Year
  Sex: Female

DRUGS (1)
  1. PAZOPANIB [Suspect]
     Active Substance: PAZOPANIB
     Indication: Leiomyosarcoma recurrent
     Dosage: ADMINISTERED AS THE FIRST?LINE SYSTEMIC THERAPY
     Route: 065

REACTIONS (1)
  - Therapy non-responder [Unknown]
